FAERS Safety Report 7219834-3 (Version None)
Quarter: 2011Q1

REPORT INFORMATION
  Report Type: 
  Country: None (occurrence: None)
  Receive Date: 20110111
  Receipt Date: 20101229
  Transmission Date: 20110831
  Serious: Yes (Hospitalization, Other)
  Sender: FDA-Public Use
  Company Number: DE-ROCHE-738777

PATIENT
  Sex: Male
  Weight: 77 kg

DRUGS (2)
  1. PEGASYS [Suspect]
     Indication: HEPATITIS B
     Route: 058
     Dates: start: 20090615
  2. VIREAD [Suspect]
     Indication: HEPATITIS B
     Route: 048
     Dates: start: 20100329

REACTIONS (7)
  - BRONCHITIS CHRONIC [None]
  - ANAEMIA [None]
  - PERICARDITIS [None]
  - LEUKOPENIA [None]
  - PERICARDIAL EFFUSION [None]
  - FEBRILE INFECTION [None]
  - WEIGHT DECREASED [None]
